FAERS Safety Report 6507940-8 (Version None)
Quarter: 2009Q4

REPORT INFORMATION
  Report Type: 
  Country: None (occurrence: None)
  Receive Date: 20091221
  Receipt Date: 20091214
  Transmission Date: 20100525
  Serious: Yes (Hospitalization)
  Sender: FDA-Public Use
  Company Number: B0613554A

PATIENT
  Age: 30 Year
  Sex: Female

DRUGS (13)
  1. ORBENIN CAP [Suspect]
     Route: 048
     Dates: start: 20091001, end: 20091016
  2. AMOXICILLIN AND CLAVULANATE POTASSIUM [Suspect]
     Route: 048
     Dates: start: 20091001, end: 20091016
  3. ENBREL [Suspect]
     Indication: ANKYLOSING SPONDYLITIS
     Dosage: 50MG MONTHLY
     Route: 058
     Dates: start: 20061027, end: 20091016
  4. ACETYLCYSTEINE [Concomitant]
     Dosage: 200MG THREE TIMES PER DAY
     Route: 048
     Dates: start: 20091001, end: 20091016
  5. FUCIDINE CAP [Concomitant]
     Indication: DRUG USE FOR UNKNOWN INDICATION
     Route: 061
     Dates: start: 20091001, end: 20091016
  6. CALCIUM CARBONATE + CHOLECALCIFEROL [Concomitant]
     Indication: ANKYLOSING SPONDYLITIS
     Route: 048
     Dates: start: 20061027, end: 20091016
  7. PENTOXIFYLLINE [Concomitant]
     Indication: DRUG USE FOR UNKNOWN INDICATION
     Dosage: 400MG TWICE PER DAY
     Route: 048
     Dates: start: 20081001, end: 20091016
  8. OMEPRAZOLE [Concomitant]
     Indication: DRUG USE FOR UNKNOWN INDICATION
     Dosage: 40MG PER DAY
     Route: 048
     Dates: end: 20091103
  9. CIDINE (SPAIN) [Concomitant]
     Indication: DRUG USE FOR UNKNOWN INDICATION
     Route: 048
     Dates: end: 20091001
  10. YAZ [Concomitant]
     Indication: DRUG USE FOR UNKNOWN INDICATION
     Route: 048
     Dates: end: 20091001
  11. BLASTOESTIMULINA OVULOS [Concomitant]
     Indication: DRUG USE FOR UNKNOWN INDICATION
     Route: 067
     Dates: end: 20091001
  12. OTIC EAR DROPS [Concomitant]
     Indication: DRUG USE FOR UNKNOWN INDICATION
     Route: 001
     Dates: end: 20091001
  13. RHINOMER [Concomitant]
     Indication: DRUG USE FOR UNKNOWN INDICATION
     Route: 045
     Dates: end: 20091001

REACTIONS (1)
  - BICYTOPENIA [None]
